FAERS Safety Report 4705663-9 (Version None)
Quarter: 2005Q2

REPORT INFORMATION
  Report Type: 
  Country: None (occurrence: None)
  Receive Date: 20050629
  Receipt Date: 20050620
  Transmission Date: 20051028
  Serious: Yes (Hospitalization)
  Sender: FDA-Public Use
  Company Number: 2005RL000068

PATIENT
  Age: 91 Year
  Sex: Female

DRUGS (3)
  1. PROPAFENONE HCL [Suspect]
     Dosage: 750 MG; X1; PO
     Route: 048
     Dates: start: 20050615, end: 20050615
  2. ENALAPRIL MALEATE [Suspect]
     Dosage: 5 DF; X1; PO
     Route: 048
     Dates: start: 20050615, end: 20050615
  3. FUROSEMIDE [Suspect]
     Dosage: 100 MG; X1; PO
     Dates: start: 20050615, end: 20050615

REACTIONS (7)
  - BRADYCARDIA [None]
  - GASTROINTESTINAL MOTILITY DISORDER [None]
  - HYPOTONIA [None]
  - INTENTIONAL MISUSE [None]
  - OVERDOSE [None]
  - SUICIDE ATTEMPT [None]
  - VOMITING [None]
